FAERS Safety Report 7171101-2 (Version None)
Quarter: 2010Q4

REPORT INFORMATION
  Report Type: 
  Country: None (occurrence: None)
  Receive Date: 20101217
  Receipt Date: 20101206
  Transmission Date: 20110411
  Serious: Yes (Hospitalization)
  Sender: FDA-Public Use
  Company Number: GB-GENENTECH-305675

PATIENT
  Sex: Male

DRUGS (12)
  1. RITUXIMAB [Suspect]
     Indication: RHEUMATOID ARTHRITIS
     Dosage: 1000 MG, UNK
     Route: 065
     Dates: start: 20100329, end: 20100412
  2. ASPIRIN [Concomitant]
     Indication: CARDIAC DISORDER
     Dosage: 75 MG, UNK
     Route: 048
  3. CLOPIDOGREL [Concomitant]
     Indication: CARDIAC DISORDER
     Dosage: 75 MG, UNK
     Route: 048
  4. SERETIDE [Concomitant]
     Indication: ASTHMA
     Dosage: 2 DF, UNK
     Route: 055
  5. THEOPHYLLINE [Concomitant]
     Indication: ASTHMA
     Dosage: 250 MG, UNK
     Route: 048
  6. BRIMONIDINE TARTRATE [Concomitant]
     Indication: PRODUCT USED FOR UNKNOWN INDICATION
     Dosage: 1 DF, UNK
  7. ATORVASTATIN [Concomitant]
     Indication: PRODUCT USED FOR UNKNOWN INDICATION
     Dosage: 80 MG, UNK
  8. PREDNISOLONE [Concomitant]
     Indication: PRODUCT USED FOR UNKNOWN INDICATION
     Dosage: 30 MG, UNK
  9. RAMIPRIL [Concomitant]
     Indication: PRODUCT USED FOR UNKNOWN INDICATION
     Dosage: 2.5 MG, UNK
  10. BISOPROLOL [Concomitant]
     Indication: PRODUCT USED FOR UNKNOWN INDICATION
     Dosage: 1.25 MG, UNK
  11. GTN SPRAY [Concomitant]
     Indication: PRODUCT USED FOR UNKNOWN INDICATION
     Dosage: UNK
  12. SALBUTAMOL [Concomitant]
     Indication: PRODUCT USED FOR UNKNOWN INDICATION
     Dosage: 2 DF, PRN
     Route: 055

REACTIONS (1)
  - MYOCARDIAL INFARCTION [None]
